FAERS Safety Report 8952869 (Version 1)
Quarter: 2012Q4

REPORT INFORMATION
  Report Type: Report from Study
  Country: KR (occurrence: KR)
  Receive Date: 20121203
  Receipt Date: 20121203
  Transmission Date: 20130627
  Serious: Yes (Hospitalization)
  Sender: FDA-Public Use
  Company Number: KR-009507513-1211KOR011873

PATIENT
  Age: 62 Year
  Sex: Female

DRUGS (2)
  1. TAFLOTAN [Suspect]
     Dosage: 1 Gtt, qd
     Route: 047
     Dates: start: 20120827, end: 20120829
  2. COMBIGAN [Concomitant]
     Dosage: 2 Gtt, qd
     Route: 047
     Dates: start: 20120828, end: 20120830

REACTIONS (2)
  - Visual acuity reduced [Recovered/Resolved]
  - Drug ineffective [Unknown]
